FAERS Safety Report 25704165 (Version 2)
Quarter: 2025Q3

REPORT INFORMATION
  Report Type: Report from Study
  Country: US (occurrence: US)
  Receive Date: 20250820
  Receipt Date: 20250905
  Transmission Date: 20251020
  Serious: No
  Sender: SUNOVION
  Company Number: US-SUMITOMO PHARMA SWITZERLAND GMBH-2025SPA010384

PATIENT
  Age: 70 Year
  Sex: Male

DRUGS (9)
  1. ORGOVYX [Suspect]
     Active Substance: RELUGOLIX
     Indication: Prostate cancer
     Route: 048
     Dates: start: 20250810, end: 20250810
  2. ORGOVYX [Suspect]
     Active Substance: RELUGOLIX
     Route: 048
  3. ALPRAZOLAM [Concomitant]
     Active Substance: ALPRAZOLAM
  4. ASPIRIN [Concomitant]
     Active Substance: ASPIRIN
  5. ATORVASTATIN CALCIUM [Concomitant]
     Active Substance: ATORVASTATIN CALCIUM
  6. LUNESTA [Concomitant]
     Active Substance: ESZOPICLONE
  7. ONDANSETRON [Concomitant]
     Active Substance: ONDANSETRON
  8. ULTRAM [Concomitant]
     Active Substance: TRAMADOL HYDROCHLORIDE
  9. VOLTAREN [Concomitant]
     Active Substance: DICLOFENAC SODIUM

REACTIONS (5)
  - Back disorder [Unknown]
  - Somnolence [Unknown]
  - Arthralgia [Unknown]
  - Fatigue [Unknown]
  - Hot flush [Unknown]
